FAERS Safety Report 19563773 (Version 2)
Quarter: 2021Q3

REPORT INFORMATION
  Report Type: Spontaneous
  Country: JP (occurrence: JP)
  Receive Date: 20210715
  Receipt Date: 20210726
  Transmission Date: 20211014
  Serious: Yes (Other)
  Sender: FDA-Public Use
  Company Number: JP-JNJFOC-20210730876

PATIENT
  Age: 67 Year
  Sex: Female

DRUGS (1)
  1. TRABECTEDIN [Suspect]
     Active Substance: TRABECTEDIN
     Indication: UTERINE LEIOMYOSARCOMA
     Dosage: FIRST CYCLE
     Route: 041
     Dates: start: 20210518

REACTIONS (1)
  - Implant site thrombosis [Unknown]
